FAERS Safety Report 9309908 (Version 6)
Quarter: 2013Q3

REPORT INFORMATION
  Report Type: Report from Study
  Country: AR (occurrence: AR)
  Receive Date: 20130526
  Receipt Date: 20130912
  Transmission Date: 20140515
  Serious: Yes (Hospitalization)
  Sender: FDA-Public Use
  Company Number: AR-B.I. PHARMACEUTICALS,INC./RIDGEFIELD-2013-RU-00526BP

PATIENT
  Age: 75 Year
  Sex: Female
  Weight: 71 kg

DRUGS (6)
  1. BI 1744 [Suspect]
     Indication: CHRONIC OBSTRUCTIVE PULMONARY DISEASE
     Dosage: 5 MCG
     Route: 055
     Dates: start: 20120625, end: 20121114
  2. BI 1744 [Suspect]
     Indication: CHRONIC OBSTRUCTIVE PULMONARY DISEASE
     Dosage: 5 MCG
     Route: 055
     Dates: start: 20120625, end: 20121114
  3. PRETREATMENT [Suspect]
     Indication: CHRONIC OBSTRUCTIVE PULMONARY DISEASE
     Dates: start: 20120625, end: 20121114
  4. BI 1744 [Suspect]
     Indication: CHRONIC OBSTRUCTIVE PULMONARY DISEASE
     Dates: start: 20120625, end: 20121114
  5. TRIAL PROCEDURE [Suspect]
     Indication: CHRONIC OBSTRUCTIVE PULMONARY DISEASE
  6. ESPIRONOLACTONA [Concomitant]
     Indication: OEDEMA PERIPHERAL
     Dosage: 100 MG
     Route: 048
     Dates: start: 20121030, end: 20121110

REACTIONS (3)
  - Confusional state [Recovered/Resolved with Sequelae]
  - Convulsion [Recovered/Resolved]
  - Acute respiratory failure [Recovered/Resolved]
